FAERS Safety Report 5890855-6 (Version None)
Quarter: 2008Q3

REPORT INFORMATION
  Report Type: 
  Country: None (occurrence: None)
  Receive Date: 20080917
  Receipt Date: 20080917
  Transmission Date: 20090109
  Serious: Yes (Life-Threatening, Hospitalization)
  Sender: FDA-Public Use
  Company Number: None

PATIENT
  Age: 86 Year
  Sex: Female
  Weight: 68.0396 kg

DRUGS (12)
  1. ARICEPT [Suspect]
     Indication: DEMENTIA ALZHEIMER'S TYPE
     Dosage: 5MG  Q24H PO
     Route: 048
  2. CARVEDILOL [Suspect]
     Indication: HYPERTENSION
     Dosage: 12.5MG Q12H PO
     Route: 048
  3. HYDROCHLOROTHIAZIDE [Concomitant]
  4. ENOXAPARIN SODIUM [Concomitant]
  5. ASPIRIN [Concomitant]
  6. RISPERIDONE [Concomitant]
  7. POTASSIUM CHLORIDE [Concomitant]
  8. HALOPERIDOL [Concomitant]
  9. AZITHROMYCIN [Concomitant]
  10. METOPROLOL [Concomitant]
  11. CEFTRIAXONE [Concomitant]
  12. HYDRALAZINE HCL [Suspect]

REACTIONS (5)
  - ATRIOVENTRICULAR BLOCK SECOND DEGREE [None]
  - BRADYCARDIA [None]
  - FALL [None]
  - HYPERTENSIVE EMERGENCY [None]
  - SYNCOPE [None]
